FAERS Safety Report 8434452-7 (Version None)
Quarter: 2012Q2

REPORT INFORMATION
  Report Type: 
  Country: None (occurrence: None)
  Receive Date: 20120614
  Receipt Date: 20120605
  Transmission Date: 20120825
  Serious: Yes (Life-Threatening, Hospitalization)
  Sender: FDA-Public Use
  Company Number: AR-BRISTOL-MYERS SQUIBB COMPANY-16547192

PATIENT
  Age: 76 Year
  Sex: Female

DRUGS (9)
  1. PANTOPRAZOLE [Concomitant]
  2. ZOLEDRONIC ACID [Concomitant]
  3. CLONAZEPAM [Suspect]
     Dosage: TAB, 1DF=30PILLS
  4. PHENOBARBITAL TAB [Suspect]
     Dosage: TAB, 1DF=30PILLS
  5. PAROXETINE [Suspect]
     Dosage: TAB, 1DF=30PILLS
  6. RAMIPRIL [Concomitant]
  7. MOSAPRIDE [Concomitant]
  8. ALCOHOL [Concomitant]
     Dosage: INGESTED
  9. ABATACEPT [Suspect]
     Indication: RHEUMATOID ARTHRITIS
     Dosage: RESRTED ON 19APR12
     Route: 042
     Dates: start: 20071210

REACTIONS (5)
  - SUICIDE ATTEMPT [None]
  - PNEUMONIA [None]
  - ASPIRATION BRONCHIAL [None]
  - MULTIPLE DRUG OVERDOSE INTENTIONAL [None]
  - COMA [None]
